FAERS Safety Report 23212878 (Version 1)
Quarter: 2023Q4

REPORT INFORMATION
  Report Type: Spontaneous
  Country: US (occurrence: None)
  Receive Date: 20231121
  Receipt Date: 20231121
  Transmission Date: 20240110
  Serious: Yes (Hospitalization)
  Sender: FDA-Public Use
  Company Number: None

PATIENT
  Age: 70 Year
  Sex: Female
  Weight: 102 kg

DRUGS (2)
  1. SEMAGLUTIDE [Suspect]
     Active Substance: SEMAGLUTIDE
     Indication: Diabetes mellitus
     Dosage: FREQUENCY : WEEKLY;?
     Route: 058
     Dates: start: 20230728, end: 20230928
  2. Tumeric Supplement [Concomitant]
     Dates: start: 20230728, end: 20230928

REACTIONS (10)
  - Nausea [None]
  - Jaundice [None]
  - Chromaturia [None]
  - Diarrhoea [None]
  - Decreased appetite [None]
  - Aspartate aminotransferase increased [None]
  - Alanine aminotransferase increased [None]
  - Blood alkaline phosphatase increased [None]
  - Faeces pale [None]
  - Palmar erythema [None]

NARRATIVE: CASE EVENT DATE: 20230927
